FAERS Safety Report 5267332-9 (Version None)
Quarter: 2007Q1

REPORT INFORMATION
  Report Type: 
  Country: None (occurrence: None)
  Receive Date: 20070316
  Receipt Date: 20070301
  Transmission Date: 20070707
  Serious: Yes (Other)
  Sender: FDA-Public Use
  Company Number: CA-AMGEN-US213278

PATIENT
  Sex: Female

DRUGS (10)
  1. ENBREL [Suspect]
     Indication: PSORIATIC ARTHROPATHY
     Route: 058
     Dates: start: 20050812, end: 20070225
  2. CALTRATE [Concomitant]
     Route: 048
     Dates: start: 20030828
  3. WELLBUTRIN [Concomitant]
     Route: 048
     Dates: start: 20031201
  4. MEDROXYPROGESTERONE [Concomitant]
     Route: 048
     Dates: start: 19990301
  5. CLIMARA [Concomitant]
     Route: 061
     Dates: start: 20050430
  6. PARIET [Concomitant]
     Route: 048
     Dates: start: 20050308
  7. TYLENOL [Concomitant]
     Route: 048
     Dates: start: 20000518
  8. VENTOLIN [Concomitant]
     Route: 055
     Dates: start: 20041202
  9. HYDROCORTISONE [Concomitant]
     Route: 061
     Dates: start: 20040429
  10. DOVONEX [Concomitant]
     Route: 061
     Dates: start: 20051001

REACTIONS (1)
  - SCLERODERMA [None]
